FAERS Safety Report 24160863 (Version 1)
Quarter: 2024Q3

REPORT INFORMATION
  Report Type: Spontaneous
  Country: CN (occurrence: CN)
  Receive Date: 20240801
  Receipt Date: 20240801
  Transmission Date: 20241016
  Serious: Yes (Hospitalization)
  Sender: MELINTA THERAPEUTICS
  Company Number: CN-AstraZeneca-2024A165205

PATIENT

DRUGS (1)
  1. METOPROLOL SUCCINATE [Suspect]
     Active Substance: METOPROLOL SUCCINATE
     Indication: Cardiovascular disorder
     Dosage: 47.5 MILLIGRAM, QD
     Route: 048
     Dates: start: 20240710, end: 20240714

REACTIONS (1)
  - Hypersensitivity [Recovering/Resolving]

NARRATIVE: CASE EVENT DATE: 20240711
